FAERS Safety Report 16088469 (Version 3)
Quarter: 2021Q1

REPORT INFORMATION
  Report Type: Spontaneous
  Country: US (occurrence: US)
  Receive Date: 20190319
  Receipt Date: 20210329
  Transmission Date: 20210419
  Serious: Yes (Hospitalization)
  Sender: FDA-Public Use
  Company Number: US-PFIZER INC-2017056417

PATIENT
  Age: 86 Year
  Sex: Female

DRUGS (8)
  1. LYRICA [Suspect]
     Active Substance: PREGABALIN
     Indication: NEURALGIA
     Dosage: 150 MG, 2X/DAY (75 MG, 2 TABLETS TWICE A DAY)
     Route: 048
     Dates: start: 201302
  2. LYRICA [Suspect]
     Active Substance: PREGABALIN
     Dosage: 75 MG, 3X/DAY
     Route: 048
  3. LYRICA [Suspect]
     Active Substance: PREGABALIN
     Indication: PAIN MANAGEMENT
     Dosage: 150 MG, 2X/DAY (PREGABALIN 150 MG)
     Route: 048
  4. OXYCODONE [Concomitant]
     Active Substance: OXYCODONE
     Indication: PAIN MANAGEMENT
     Dosage: UNK
  5. LYRICA [Suspect]
     Active Substance: PREGABALIN
     Dosage: 300 MG, 3X/DAY
     Route: 048
  6. LYRICA [Suspect]
     Active Substance: PREGABALIN
     Dosage: 75 MG, 2X/DAY
     Route: 048
  7. LYRICA [Suspect]
     Active Substance: PREGABALIN
     Indication: PERIPHERAL SENSORY NEUROPATHY
     Dosage: 150 MG, 3X/DAY
     Route: 048
  8. HYDROCODONE [Concomitant]
     Active Substance: HYDROCODONE
     Indication: PAIN MANAGEMENT
     Dosage: UNK

REACTIONS (3)
  - Prescribed overdose [Unknown]
  - Vertigo [Unknown]
  - Weight increased [Unknown]
